FAERS Safety Report 19415569 (Version 1)
Quarter: 2021Q2

REPORT INFORMATION
  Report Type: Spontaneous
  Country: US (occurrence: US)
  Receive Date: 20210614
  Receipt Date: 20210614
  Transmission Date: 20210717
  Serious: No
  Sender: FDA-Public Use
  Company Number: US-GALDERMA-US2021009543

PATIENT
  Age: 50 Year
  Sex: Female

DRUGS (2)
  1. TRI?LUMA [Suspect]
     Active Substance: FLUOCINOLONE ACETONIDE\HYDROQUINONE\TRETINOIN
     Dosage: 0.01%/4%/0.05%
     Route: 061
     Dates: start: 20210417
  2. TRI?LUMA [Suspect]
     Active Substance: FLUOCINOLONE ACETONIDE\HYDROQUINONE\TRETINOIN
     Indication: CHLOASMA
     Dosage: 0.01%/4%/0.05%
     Route: 061
     Dates: start: 20210324, end: 20210414

REACTIONS (5)
  - Skin burning sensation [Recovering/Resolving]
  - Inappropriate schedule of product administration [Recovered/Resolved]
  - Underdose [Recovered/Resolved]
  - Erythema [Recovering/Resolving]
  - Pain of skin [Recovering/Resolving]

NARRATIVE: CASE EVENT DATE: 20210324
